FAERS Safety Report 18742173 (Version 2)
Quarter: 2021Q1

REPORT INFORMATION
  Report Type: Spontaneous
  Country: US (occurrence: US)
  Receive Date: 20210114
  Receipt Date: 20210329
  Transmission Date: 20210419
  Serious: Yes (Hospitalization, Other)
  Sender: FDA-Public Use
  Company Number: US-PFIZER INC-2021010878

PATIENT
  Age: 61 Year
  Sex: Male
  Weight: 97.52 kg

DRUGS (4)
  1. NARDIL [Suspect]
     Active Substance: PHENELZINE SULFATE
     Indication: MAJOR DEPRESSION
     Dosage: 60 MG, DAILY (TAKE FOUR IN AM BY MOUTH)
     Route: 048
     Dates: start: 2011
  2. FLOMAX [Interacting]
     Active Substance: TAMSULOSIN HYDROCHLORIDE
     Indication: URINARY TRACT DISORDER
     Dosage: UNK
     Dates: start: 2017, end: 201802
  3. FLOMAX [Interacting]
     Active Substance: TAMSULOSIN HYDROCHLORIDE
     Indication: URINARY TRACT DISORDER
     Dosage: UNK
     Dates: start: 2017, end: 201802
  4. CRESTOR [Concomitant]
     Active Substance: ROSUVASTATIN CALCIUM
     Indication: BLOOD CHOLESTEROL ABNORMAL
     Dosage: 10 MG, 1X/DAY
     Route: 048

REACTIONS (12)
  - Drug interaction [Recovered/Resolved]
  - Hypotension [Recovering/Resolving]
  - Loss of consciousness [Recovered/Resolved]
  - Weight increased [Unknown]
  - Circulatory collapse [Recovered/Resolved]
  - Feeling abnormal [Recovering/Resolving]
  - Food interaction [Unknown]
  - Blood pressure decreased [Recovering/Resolving]
  - Malaise [Recovering/Resolving]
  - Product use issue [Unknown]
  - Dysstasia [Unknown]
  - Prostatic disorder [Unknown]

NARRATIVE: CASE EVENT DATE: 2011
